FAERS Safety Report 11794355 (Version 1)
Quarter: 2015Q4

REPORT INFORMATION
  Report Type: Spontaneous
  Country: FR (occurrence: FR)
  Receive Date: 20151202
  Receipt Date: 20151202
  Transmission Date: 20160305
  Serious: Yes (Hospitalization)
  Sender: FDA-Public Use
  Company Number: FR-TEVA-612977ISR

PATIENT
  Age: 52 Year
  Sex: Female

DRUGS (1)
  1. COPAXONE [Suspect]
     Active Substance: GLATIRAMER ACETATE
     Dates: start: 20150910

REACTIONS (3)
  - Stent placement [Unknown]
  - Haemorrhage [Unknown]
  - Skin infection [Unknown]

NARRATIVE: CASE EVENT DATE: 201511
